FAERS Safety Report 24865955 (Version 1)
Quarter: 2025Q1

REPORT INFORMATION
  Report Type: Spontaneous
  Country: US (occurrence: US)
  Receive Date: 20250121
  Receipt Date: 20250121
  Transmission Date: 20250409
  Serious: No
  Sender: CURRAX PHARMACEUTICALS
  Company Number: US-CURRAX PHARMACEUTICALS LLC-US-2023CUR002824

PATIENT
  Age: 50 Year
  Sex: Female

DRUGS (1)
  1. CONTRAVE [Suspect]
     Active Substance: BUPROPION HYDROCHLORIDE\NALTREXONE HYDROCHLORIDE
     Indication: Weight control
     Dosage: STRENGTH 8/90 MG, 2 TAB AM AND 2 TAB PM
     Route: 065
     Dates: start: 20230614, end: 20230614

REACTIONS (2)
  - Inability to afford medication [Unknown]
  - Drug titration error [Unknown]

NARRATIVE: CASE EVENT DATE: 20230614
